FAERS Safety Report 7417762-1 (Version None)
Quarter: 2011Q2

REPORT INFORMATION
  Report Type: 
  Country: None (occurrence: None)
  Receive Date: 20110415
  Receipt Date: 20110406
  Transmission Date: 20111010
  Serious: Yes (Other)
  Sender: FDA-Public Use
  Company Number: US-RB-024295-11

PATIENT
  Age: 27 Year
  Sex: Female

DRUGS (2)
  1. MUCINEX [Suspect]
     Dosage: TWO TABLETS TAKEN AT 12PM ON 04-APR-2011
     Route: 048
  2. LEXAPRO [Concomitant]

REACTIONS (2)
  - EPISTAXIS [None]
  - HAEMOPTYSIS [None]
